FAERS Safety Report 8327870-9 (Version None)
Quarter: 2012Q2

REPORT INFORMATION
  Report Type: 
  Country: None (occurrence: None)
  Receive Date: 20120502
  Receipt Date: 20120418
  Transmission Date: 20120825
  Serious: Yes (Death, Hospitalization)
  Sender: FDA-Public Use
  Company Number: CN-MPIJNJ-2011-06228

PATIENT

DRUGS (7)
  1. VELCADE [Suspect]
     Dosage: 1.5 MG, UNK
     Dates: start: 20111101, end: 20111201
  2. VELCADE [Suspect]
     Dosage: 1 MG, UNK
     Route: 065
     Dates: start: 20110928
  3. VELCADE [Suspect]
     Dosage: 2 MG, UNK
  4. THALIDOMIDE [Concomitant]
  5. MELPHALAN HYDROCHLORIDE [Concomitant]
  6. PREDNISONE [Concomitant]
  7. VELCADE [Suspect]
     Indication: MULTIPLE MYELOMA
     Dosage: 2 MG, UNK
     Route: 042
     Dates: start: 20110901

REACTIONS (4)
  - CEREBRAL HAEMORRHAGE [None]
  - LYMPHADENOPATHY [None]
  - THROMBOCYTOPENIA [None]
  - HEPATIC NEOPLASM [None]
